FAERS Safety Report 26073029 (Version 1)
Quarter: 2025Q4

REPORT INFORMATION
  Report Type: Spontaneous
  Country: US (occurrence: US)
  Receive Date: 20251121
  Receipt Date: 20251121
  Transmission Date: 20260118
  Serious: Yes (Other)
  Sender: TEVA
  Company Number: US-TEVA-VS-3392765

PATIENT
  Age: 64 Year
  Sex: Male

DRUGS (1)
  1. VENLAFAXINE [Suspect]
     Active Substance: VENLAFAXINE HYDROCHLORIDE
     Indication: Product used for unknown indication
     Dosage: FOR ABOUT A YEAR
     Route: 065
     Dates: start: 2014

REACTIONS (3)
  - Libido decreased [Unknown]
  - Sexual activity decreased [Unknown]
  - Ejaculation failure [Unknown]
